FAERS Safety Report 9976075 (Version 2)
Quarter: 2014Q1

REPORT INFORMATION
  Report Type: Spontaneous
  Country: US (occurrence: US)
  Receive Date: 20140306
  Receipt Date: 20140324
  Transmission Date: 20141002
  Serious: Yes (Other)
  Sender: FDA-Public Use
  Company Number: US-RB-064115-14

PATIENT
  Age: 27 Year
  Sex: Female

DRUGS (5)
  1. SUBOXONE FILM [Suspect]
     Indication: DRUG DEPENDENCE
     Dosage: SUBOXONE FILM
     Route: 060
     Dates: start: 201110, end: 20140118
  2. SUBOXONE FILM [Suspect]
     Dosage: SUBOXONE FILM; CUTTING AND TAKING 1 AND A HALF STRIP
     Route: 060
     Dates: start: 20140119, end: 20140123
  3. SUBOXONE FILM [Suspect]
     Dosage: SUBOXONE FILM
     Route: 060
     Dates: start: 20140124, end: 20140128
  4. ALCOHOL [Suspect]
     Indication: PRODUCT USED FOR UNKNOWN INDICATION
     Dosage: ONE GLASS OF WINE WITH DINNER DURING PREGNANCY
     Route: 048
     Dates: start: 201311, end: 20140113
  5. NICOTINE [Concomitant]
     Indication: PRODUCT USED FOR UNKNOWN INDICATION
     Dosage: 10 CIGARETTES DAILY
     Route: 055

REACTIONS (8)
  - Alcohol abuse [Recovered/Resolved]
  - Maternal exposure during pregnancy [Recovered/Resolved]
  - Stress [Unknown]
  - Haemorrhage in pregnancy [Recovered/Resolved]
  - Abortion spontaneous [Recovered/Resolved]
  - Post abortion haemorrhage [Recovered/Resolved]
  - Wrong technique in drug usage process [Recovered/Resolved]
  - Drug withdrawal syndrome [Recovered/Resolved]
